FAERS Safety Report 11979867 (Version 3)
Quarter: 2017Q1

REPORT INFORMATION
  Report Type: Report from Study
  Country: None (occurrence: CA)
  Receive Date: 20160129
  Receipt Date: 20170207
  Transmission Date: 20170428
  Serious: Yes (Hospitalization, Other)
  Sender: FDA-Public Use
  Company Number: CA-ABBVIE-16P-028-1546813-00

PATIENT
  Age: 48 Year
  Sex: Female

DRUGS (1)
  1. HUMIRA [Suspect]
     Active Substance: ADALIMUMAB
     Indication: RHEUMATOID ARTHRITIS
     Route: 058
     Dates: start: 20100909, end: 20160102

REACTIONS (3)
  - Sciatic nerve neuropathy [Unknown]
  - Intervertebral disc protrusion [Not Recovered/Not Resolved]
  - Monoplegia [Unknown]

NARRATIVE: CASE EVENT DATE: 201512
